FAERS Safety Report 9421515 (Version 5)
Quarter: 2013Q4

REPORT INFORMATION
  Report Type: Spontaneous
  Country: US (occurrence: US)
  Receive Date: 20130726
  Receipt Date: 20131031
  Transmission Date: 20140711
  Serious: Yes (Hospitalization)
  Sender: FDA-Public Use
  Company Number: US-BIOGENIDEC-2013BI066942

PATIENT
  Sex: Female

DRUGS (10)
  1. AVONEX [Suspect]
     Indication: MULTIPLE SCLEROSIS
     Route: 030
     Dates: start: 20121019, end: 20130414
  2. POTASSIUM CHLORIDE [Concomitant]
     Route: 048
  3. GLUCOPHAGE [Concomitant]
     Route: 048
  4. CLONIDINE [Concomitant]
     Route: 048
  5. LORTAB [Concomitant]
     Route: 048
  6. NORVASC [Concomitant]
     Route: 048
  7. TENORMIN [Concomitant]
     Route: 048
  8. HYDROCHLOROTHIAZIDE [Concomitant]
     Route: 048
  9. CRESTOR [Concomitant]
     Route: 048
  10. ACCUPRIL [Concomitant]
     Route: 048

REACTIONS (13)
  - Metabolic acidosis [Recovered/Resolved]
  - Hypertension [Unknown]
  - Type 2 diabetes mellitus [Unknown]
  - Urinary tract infection [Unknown]
  - Pseudomonas infection [Unknown]
  - Hypokalaemia [Unknown]
  - Decreased appetite [Unknown]
  - Asthenia [Unknown]
  - Nausea [Unknown]
  - Vomiting [Recovered/Resolved]
  - Renal failure [Recovered/Resolved]
  - Memory impairment [Recovered/Resolved]
  - Hemiparesis [Not Recovered/Not Resolved]
